FAERS Safety Report 6617938-7 (Version None)
Quarter: 2010Q1

REPORT INFORMATION
  Report Type: 
  Country: None (occurrence: None)
  Receive Date: 20100308
  Receipt Date: 20100222
  Transmission Date: 20100710
  Serious: Yes (Other)
  Sender: FDA-Public Use
  Company Number: PHHY2010BR10271

PATIENT
  Sex: Male

DRUGS (1)
  1. FORASEQ [Suspect]
     Indication: LUNG DISORDER
     Dosage: TWICE A DAY (IN THE MORNING AND AT NIGHT)
     Dates: end: 20100222

REACTIONS (4)
  - DYSPHAGIA [None]
  - FUNGAL INFECTION [None]
  - MALAISE [None]
  - THROAT TIGHTNESS [None]
